FAERS Safety Report 6733571-0 (Version None)
Quarter: 2010Q2

REPORT INFORMATION
  Report Type: 
  Country: None (occurrence: None)
  Receive Date: 20100520
  Receipt Date: 20100511
  Transmission Date: 20101027
  Serious: Yes (Hospitalization)
  Sender: FDA-Public Use
  Company Number: ES-MILLENNIUM PHARMACEUTICALS, INC.-2010-02594

PATIENT

DRUGS (3)
  1. VELCADE [Suspect]
     Indication: MULTIPLE MYELOMA
     Dosage: 2.37 MG, UNK
     Route: 042
     Dates: start: 20091231, end: 20100507
  2. FLUDARABINE [Suspect]
     Indication: MULTIPLE MYELOMA
     Dosage: 30 MG/M2, UNK
     Route: 042
     Dates: start: 20100113, end: 20100117
  3. MELPHALAN HYDROCHLORIDE [Suspect]
     Indication: MULTIPLE MYELOMA
     Dosage: 70 MG/M2, UNK
     Route: 042
     Dates: start: 20100118, end: 20100119

REACTIONS (2)
  - DRUG TOXICITY [None]
  - GRAFT VERSUS HOST DISEASE [None]
